FAERS Safety Report 9271534 (Version 1)
Quarter: 2013Q2

REPORT INFORMATION
  Report Type: Spontaneous
  Country: US (occurrence: US)
  Receive Date: 20130506
  Receipt Date: 20130506
  Transmission Date: 20140414
  Serious: No
  Sender: FDA-Public Use
  Company Number: US-PFIZER INC-2013136859

PATIENT
  Sex: Female

DRUGS (8)
  1. XELJANZ [Suspect]
     Dosage: 5 MG, 2X/DAY
     Route: 048
     Dates: start: 201302
  2. CYMBALTA [Concomitant]
     Dosage: UNK
  3. TRAMADOL HYDROCHLORIDE [Concomitant]
     Dosage: UNK
  4. ADVAIR DISKUS [Concomitant]
     Dosage: UNK., 500-50
  5. PRILOSEC [Concomitant]
     Dosage: UNK
  6. ZYRTEC [Concomitant]
     Dosage: UNK
  7. ZANAFLEX [Concomitant]
     Dosage: UNK
  8. VITAMIN D3 [Concomitant]
     Dosage: UNK

REACTIONS (5)
  - Nasal congestion [Unknown]
  - Oropharyngeal pain [Unknown]
  - Rhinorrhoea [Unknown]
  - Infection [Unknown]
  - Headache [Unknown]
